FAERS Safety Report 11876034 (Version 3)
Quarter: 2016Q1

REPORT INFORMATION
  Report Type: Spontaneous
  Country: ES (occurrence: ES)
  Receive Date: 20151229
  Receipt Date: 20160211
  Transmission Date: 20160526
  Serious: Yes (Hospitalization)
  Sender: FDA-Public Use
  Company Number: ES-PFIZER INC-2015466421

PATIENT
  Age: 42 Year
  Sex: Male

DRUGS (5)
  1. TAPENTADOL [Suspect]
     Active Substance: TAPENTADOL
  2. LYRICA [Suspect]
     Active Substance: PREGABALIN
  3. DICLOFENAC SODIUM. [Suspect]
     Active Substance: DICLOFENAC SODIUM
     Dosage: UNK
     Dates: start: 201502
  4. DULOXETINE. [Suspect]
     Active Substance: DULOXETINE
  5. PALEXIA [Suspect]
     Active Substance: TAPENTADOL HYDROCHLORIDE

REACTIONS (9)
  - Somnolence [Unknown]
  - Chest discomfort [Unknown]
  - Hernia [Unknown]
  - Intervertebral disc degeneration [Unknown]
  - Skin discolouration [Unknown]
  - Intervertebral disc protrusion [Unknown]
  - Pain [Unknown]
  - Paraesthesia [Unknown]
  - Skin necrosis [Unknown]

NARRATIVE: CASE EVENT DATE: 201502
